FAERS Safety Report 4975760-1 (Version None)
Quarter: 2006Q2

REPORT INFORMATION
  Report Type: 
  Country: None (occurrence: None)
  Receive Date: 20060411
  Receipt Date: 20060323
  Transmission Date: 20061013
  Serious: Yes (Other)
  Sender: FDA-Public Use
  Company Number: FR200603006231

PATIENT
  Age: 71 Year
  Sex: Female

DRUGS (2)
  1. FORTEO [Suspect]
     Indication: OSTEOPOROSIS
     Dosage: 20 UG, DAILY (1/D) , SUBCUTANEOUS
     Route: 058
     Dates: start: 20050513
  2. FORTEO [Concomitant]
     Dosage: 250MCG/ML

REACTIONS (2)
  - COUGH [None]
  - INTERSTITIAL LUNG DISEASE [None]
